FAERS Safety Report 23579112 (Version 2)
Quarter: 2024Q2

REPORT INFORMATION
  Report Type: Spontaneous
  Country: JP (occurrence: JP)
  Receive Date: 20240229
  Receipt Date: 20240410
  Transmission Date: 20240716
  Serious: Yes (Death, Other)
  Sender: FDA-Public Use
  Company Number: JP-ASTELLAS-2024US006072

PATIENT
  Age: 7 Decade
  Sex: Male

DRUGS (2)
  1. CRESEMBA [Suspect]
     Active Substance: ISAVUCONAZONIUM SULFATE
     Indication: Systemic mycosis
     Route: 048
     Dates: start: 202312, end: 202312
  2. CRESEMBA [Suspect]
     Active Substance: ISAVUCONAZONIUM SULFATE
     Route: 048
     Dates: start: 202312, end: 202401

REACTIONS (2)
  - Interstitial lung disease [Fatal]
  - Off label use [Unknown]

NARRATIVE: CASE EVENT DATE: 20231201
